FAERS Safety Report 5255287-2 (Version None)
Quarter: 2007Q1

REPORT INFORMATION
  Report Type: 
  Country: None (occurrence: None)
  Receive Date: 20070228
  Receipt Date: 20061129
  Transmission Date: 20070707
  Serious: Yes (Other)
  Sender: FDA-Public Use
  Company Number: 2006SP007939

PATIENT
  Age: 76 Year
  Sex: Male

DRUGS (1)
  1. ASMANEX TWISTHALER [Suspect]
     Indication: ASTHMA
     Dosage: 400 MCG; PO
     Route: 048
     Dates: start: 20060901

REACTIONS (3)
  - AGEUSIA [None]
  - ANOSMIA [None]
  - ORAL FUNGAL INFECTION [None]
